FAERS Safety Report 4273732-6 (Version None)
Quarter: 2004Q1

REPORT INFORMATION
  Report Type: 
  Country: None (occurrence: None)
  Receive Date: 20040114
  Receipt Date: 20040109
  Transmission Date: 20041129
  Serious: Yes (Death, Life-Threatening, Hospitalization)
  Sender: FDA-Public Use
  Company Number: 2003-UK-00676UK(1)

PATIENT
  Age: 89 Year
  Sex: Female

DRUGS (5)
  1. MOBIC [Suspect]
     Indication: OSTEOARTHRITIS
     Dosage: 7.5 MG DAILY
     Route: 048
     Dates: end: 20031029
  2. CO-CODAMOL (PANADEINE CO) [Concomitant]
  3. CO-BENELDOPA (MADOPAR) [Concomitant]
  4. VENALFAXINE [Concomitant]
  5. LACTULOSE [Concomitant]

REACTIONS (3)
  - HAEMATEMESIS [None]
  - PNEUMONIA ASPIRATION [None]
  - UPPER GASTROINTESTINAL HAEMORRHAGE [None]
